FAERS Safety Report 10045019 (Version 2)
Quarter: 2014Q2

REPORT INFORMATION
  Report Type: Spontaneous
  Country: US (occurrence: US)
  Receive Date: 20140328
  Receipt Date: 20140507
  Transmission Date: 20141212
  Serious: No
  Sender: FDA-Public Use
  Company Number: US-009507513-1403USA010831

PATIENT
  Age: 74 Year
  Sex: Female

DRUGS (2)
  1. DULERA [Suspect]
     Indication: BRONCHITIS
     Dosage: 1 PUFF / TWICE A DAY
     Route: 055
     Dates: start: 2013
  2. METFORMIN [Concomitant]
     Dosage: UNK

REACTIONS (8)
  - Vomiting [Recovered/Resolved]
  - Productive cough [Recovered/Resolved]
  - Cough [Recovered/Resolved]
  - Wheezing [Recovered/Resolved]
  - Underdose [Unknown]
  - Drug dose omission [Unknown]
  - Product quality issue [Unknown]
  - Off label use [Unknown]
